FAERS Safety Report 19495526 (Version 2)
Quarter: 2024Q4

REPORT INFORMATION
  Report Type: Spontaneous
  Country: IT (occurrence: IT)
  Receive Date: 20210706
  Receipt Date: 20241015
  Transmission Date: 20250115
  Serious: Yes (Other)
  Sender: AMGEN
  Company Number: IT-CELLTRION HEALTHCARE HUNGARY KFT-2021IT006701

PATIENT
  Age: 59 Year
  Sex: Female
  Weight: 82 kg

DRUGS (55)
  1. IVABRADINE [Suspect]
     Active Substance: IVABRADINE
     Indication: Product used for unknown indication
     Dosage: 130 MG (UNIT=NOT AVAILABLE)
     Route: 042
     Dates: start: 20190314, end: 20190610
  2. IVABRADINE [Suspect]
     Active Substance: IVABRADINE
     Dosage: 25 MILLIGRAM, QD (UNIT=NOT AVAILABLE)
     Route: 042
     Dates: start: 20221215, end: 20210107
  3. IVABRADINE [Suspect]
     Active Substance: IVABRADINE
     Dosage: 3.6 MICROGRAM/KILOGRAM, Q3WK (UNIT=NOT AVAILABLE)
     Route: 042
     Dates: start: 20200506, end: 20201104
  4. IVABRADINE [Suspect]
     Active Substance: IVABRADINE
     Dosage: 840 MILLIGRAM, Q3WK (UNIT=NOT AVAILABLE)
     Route: 042
     Dates: start: 20190314, end: 20190314
  5. IVABRADINE [Suspect]
     Active Substance: IVABRADINE
     Dosage: 25 MILLIGRAM, QD (UNIT=NOT AVAILABLE)
     Route: 048
     Dates: start: 20190819, end: 20200422
  6. IVABRADINE [Suspect]
     Active Substance: IVABRADINE
     Dosage: UNK MILLIGRAM/SQ. METER (UNIT=NOT AVAILABLE)
     Route: 042
     Dates: start: 20201215
  7. IVABRADINE [Suspect]
     Active Substance: IVABRADINE
     Dosage: UNK (UNIT=NOT AVAILABLE)
     Route: 065
     Dates: start: 20151118
  8. IVABRADINE [Suspect]
     Active Substance: IVABRADINE
     Dosage: 7.5 MILLIGRAM
     Route: 048
     Dates: start: 20151118
  9. IVABRADINE [Suspect]
     Active Substance: IVABRADINE
     Dosage: 3.6 MICROGRAM/KILOGRAM, Q3WK (UNIT=NOT AVAILABLE)
     Route: 042
     Dates: start: 20200506, end: 20201104
  10. TRASTUZUMAB [Suspect]
     Active Substance: TRASTUZUMAB
     Indication: HER2 positive breast cancer
     Dosage: 2 UG/KG; DATE OF MOST RECENT DOSE RECEIVED PRIOR TO THE EVENT ONSET: 15/DEC/2020
     Route: 042
     Dates: start: 20201215, end: 20210107
  11. TRASTUZUMAB [Suspect]
     Active Substance: TRASTUZUMAB
     Dosage: 500 MILLIGRAM, QD
     Route: 042
     Dates: start: 20190314, end: 20190314
  12. TRASTUZUMAB [Suspect]
     Active Substance: TRASTUZUMAB
     Dosage: 6 MICROGRAM/KILOGRAM (6 UG/KG EVERY 3 WEEKS (MOST RECENT DOSE PRIOR TO )
     Route: 042
     Dates: start: 20210113
  13. TRASTUZUMAB [Suspect]
     Active Substance: TRASTUZUMAB
     Dosage: 480 MG EVERY 3 WEEKS
     Route: 042
     Dates: start: 20190408, end: 20190311
  14. ADO-TRASTUZUMAB EMTANSINE [Suspect]
     Active Substance: ADO-TRASTUZUMAB EMTANSINE
     Indication: HER2 positive breast cancer
     Dosage: 3.6 UG/KG, EVERY 3 WEEKS; DATE OF MOST RECENT DOSE RECEIVED PRIOR TO THE EVENT ONSET: 04/NOV/2020
     Route: 042
     Dates: start: 20200506, end: 20201104
  15. ADO-TRASTUZUMAB EMTANSINE [Suspect]
     Active Substance: ADO-TRASTUZUMAB EMTANSINE
     Dosage: 3.6 MICROGRAM/KILOGRAM, Q3WK (UNIT=NOT AVAILABLE)
     Route: 042
     Dates: start: 20200506, end: 20201104
  16. ADO-TRASTUZUMAB EMTANSINE [Suspect]
     Active Substance: ADO-TRASTUZUMAB EMTANSINE
     Dosage: 3.6 MICROGRAM/KILOGRAM, Q3WK (UNIT=NOT AVAILABLE)
     Route: 042
     Dates: start: 20201215
  17. ADO-TRASTUZUMAB EMTANSINE [Suspect]
     Active Substance: ADO-TRASTUZUMAB EMTANSINE
     Dosage: 3.6 UG/KG, EVERY 3 WEEKS; DATE OF MOST RECENT DOSE RECEIVED PRIOR TO THE EVENT ONSET: 04/NOV/2020
     Route: 042
     Dates: start: 20201104
  18. PERTUZUMAB [Suspect]
     Active Substance: PERTUZUMAB
     Indication: HER2 positive breast cancer
     Dosage: 840 MILLIGRAM 840 MG, EVERY 3 WEEKS; DATE OF MOST RECENT DOSE
     Route: 042
     Dates: start: 20190314, end: 20190314
  19. PERTUZUMAB [Suspect]
     Active Substance: PERTUZUMAB
     Dosage: 840 MG, EVERY 3 WEEKS; DATE OF MOST RECENT DOSE RECEIVED PRIOR TO THE EVENT ONSET: 08/APR/2019
     Route: 042
     Dates: start: 20190314, end: 20190314
  20. PERTUZUMAB [Suspect]
     Active Substance: PERTUZUMAB
     Dosage: 420 MILLIGRAM (420 MG EVERY 3 WEEKS (DATE OF MOST RECENT DOSE )
     Route: 042
     Dates: start: 20190408
  21. PACLITAXEL [Suspect]
     Active Substance: PACLITAXEL
     Indication: HER2 positive breast cancer
     Dosage: DATE OF MOST RECENT DOSE RECEIVED PRIOR TO THE EVENT ONSET: 17/JUN/2019
     Route: 042
     Dates: start: 20190314, end: 20190610
  22. PACLITAXEL [Suspect]
     Active Substance: PACLITAXEL
     Dosage: 130 MG (UNIT=NOT AVAILABLE)
     Route: 042
     Dates: start: 20190314, end: 20190610
  23. PACLITAXEL [Suspect]
     Active Substance: PACLITAXEL
     Dosage: 90 MG (DATE OF MOST RECENT DOSE RECEIVED PRIOR TO THE
     Route: 042
     Dates: start: 20190617, end: 20190610
  24. VINORELBINE [Suspect]
     Active Substance: VINORELBINE TARTRATE
     Indication: HER2 positive breast cancer
     Dosage: 25 MILLIGRAM/SQ. METER (25 MG/M2 DAY 1, 8 Q21)
     Route: 065
     Dates: start: 20201215, end: 20210617
  25. VINORELBINE [Suspect]
     Active Substance: VINORELBINE TARTRATE
     Dosage: UNK MILLIGRAM/SQ. METER (UNIT=NOT AVAILABLE)
     Route: 065
     Dates: start: 20201215
  26. VINORELBINE [Suspect]
     Active Substance: VINORELBINE TARTRATE
     Dosage: UNK MILLIGRAM/SQ. METER (UNIT=NOT AVAILABLE)
     Route: 065
     Dates: start: 20201215
  27. EXEMESTANE [Suspect]
     Active Substance: EXEMESTANE
     Indication: HER2 positive breast cancer
     Dosage: 25 MG, QD; DATE OF MOST RECENT DOSE OF EXEMESTANE RECEIVED PRIOR TO THE EVENT ONSET: 22/APR/2020
     Route: 048
     Dates: start: 20190819, end: 20200422
  28. EXEMESTANE [Suspect]
     Active Substance: EXEMESTANE
     Dosage: 25 MILLIGRAM, QD (UNIT=NOT AVAILABLE)
     Route: 048
     Dates: start: 20190819, end: 20200422
  29. EXEMESTANE [Suspect]
     Active Substance: EXEMESTANE
     Dosage: 25 MILLIGRAM, QD
     Route: 048
     Dates: start: 20190819, end: 20200422
  30. QUETIAPINE FUMARATE [Concomitant]
     Active Substance: QUETIAPINE FUMARATE
     Indication: Product used for unknown indication
     Dosage: UNK
     Route: 065
  31. QUETIAPINE [Concomitant]
     Active Substance: QUETIAPINE
     Indication: Product used for unknown indication
     Dosage: 5 MILLIGRAM, QD
     Route: 048
  32. CHOLECALCIFEROL [Concomitant]
     Active Substance: CHOLECALCIFEROL
     Indication: Product used for unknown indication
     Dosage: UNK, QMO
     Route: 048
  33. URSODIOL [Concomitant]
     Active Substance: URSODIOL
     Indication: Product used for unknown indication
     Dosage: 450 MILLIGRAM (450 MG, EVERY 1 DAY)
     Route: 065
     Dates: start: 20200709, end: 20201125
  34. BISOPROLOL [Concomitant]
     Active Substance: BISOPROLOL\BISOPROLOL FUMARATE
     Indication: Product used for unknown indication
     Dosage: UNK
     Dates: start: 20200709
  35. BISOPROLOL [Concomitant]
     Active Substance: BISOPROLOL\BISOPROLOL FUMARATE
     Dosage: UNK
     Dates: start: 20151118
  36. BISOPROLOL [Concomitant]
     Active Substance: BISOPROLOL\BISOPROLOL FUMARATE
     Dosage: 1.25 MILLIGRAM (1.25 MG PRN (AS NEEDED))
     Route: 048
     Dates: start: 20151118
  37. CLARITHROMYCIN [Concomitant]
     Active Substance: CLARITHROMYCIN
     Dosage: 500 MILLIGRAM, QMO
     Route: 048
     Dates: start: 202010, end: 202011
  38. AMOXICILLIN [Concomitant]
     Active Substance: AMOXICILLIN
     Dosage: 1 GRAM, QMO (1 GRAM EVERY 0.5 DAY)
     Route: 048
     Dates: start: 202010, end: 202011
  39. PREDNISONE [Concomitant]
     Active Substance: PREDNISONE
     Dosage: 12.5 MILLIGRAM (12.5 MG, EVERY 1 DAY)
     Route: 048
     Dates: start: 20200709, end: 20200723
  40. HEPARIN SODIUM [Concomitant]
     Active Substance: HEPARIN SODIUM
     Dosage: UNK
     Route: 042
     Dates: start: 20190314, end: 20190722
  41. CYMBALTA [Concomitant]
     Active Substance: DULOXETINE HYDROCHLORIDE
     Dosage: 30 MILLIGRAM
     Route: 048
     Dates: start: 20190610
  42. ALIZAPRIDE [Concomitant]
     Active Substance: ALIZAPRIDE
     Dosage: 100 MILLIGRAM, QWK
     Route: 042
     Dates: start: 20201216
  43. ALIZAPRIDE [Concomitant]
     Active Substance: ALIZAPRIDE
     Dosage: UNK UNK, QWK (2.00 AMPULE EVERY 1 WEEK)
     Route: 042
     Dates: start: 20190502, end: 20190722
  44. ONDANSETRON [Concomitant]
     Active Substance: ONDANSETRON
     Dosage: 8 MILLIGRAM, QWK
     Route: 042
     Dates: start: 20190314, end: 20190424
  45. ESOMEPRAZOLE [Concomitant]
     Active Substance: ESOMEPRAZOLE
     Indication: Oesophagitis
     Dosage: 40 MILLIGRAM (40 MG EVERY 0.5 DAY)
     Route: 048
     Dates: start: 20200422, end: 20200501
  46. ESOMEPRAZOLE [Concomitant]
     Active Substance: ESOMEPRAZOLE
     Dosage: 20 MILLIGRAM (20 MG QOD (EVERY OTHER DAY))
     Route: 048
     Dates: start: 202011, end: 202011
  47. ESOMEPRAZOLE [Concomitant]
     Active Substance: ESOMEPRAZOLE
     Dosage: 40 MILLIGRAM (40 MG EVERY 0.5 DAY)
     Route: 048
     Dates: start: 20200502, end: 20200701
  48. ESOMEPRAZOLE [Concomitant]
     Active Substance: ESOMEPRAZOLE
     Dosage: 20 MILLIGRAM (20 MG QOD (EVERY OTHER DAY))
     Route: 048
     Dates: start: 202011, end: 202011
  49. HYDROCORTISONE [Concomitant]
     Active Substance: HYDROCORTISONE
     Dosage: 250 MILLIGRAM, QWK (250 MG, 1/WEEK)
     Route: 042
     Dates: start: 20190314, end: 20190722
  50. DEXAMETHASONE [Concomitant]
     Active Substance: DEXAMETHASONE
     Indication: Nausea
     Dosage: 2 MILLIGRAM
     Route: 048
     Dates: start: 20210830, end: 20210831
  51. DEXAMETHASONE [Concomitant]
     Active Substance: DEXAMETHASONE
     Dosage: 4 MILLIGRAM
     Route: 048
     Dates: start: 20210824, end: 20210829
  52. DEXAMETHASONE [Concomitant]
     Active Substance: DEXAMETHASONE
     Dosage: 8 MILLIGRAM
     Route: 048
     Dates: start: 20210823, end: 20210823
  53. RANITIDINE [Concomitant]
     Active Substance: RANITIDINE
     Dosage: UNK UNK, QWK (1.00 AMPULE SOLUTION EVERY 1 WEEK)
     Route: 042
     Dates: start: 20190314, end: 20190722
  54. PYLERA [Concomitant]
     Active Substance: BISMUTH SUBCITRATE POTASSIUM\METRONIDAZOLE\TETRACYCLINE HYDROCHLORIDE
     Dosage: 3 DOSAGE FORM (3 DF EVERY 0.25 DAY)
     Route: 048
     Dates: start: 20200422, end: 20200501
  55. CHLORPHENIRAMINE MALEATE [Concomitant]
     Active Substance: CHLORPHENIRAMINE MALEATE
     Dosage: EVERY 1 WEEK
     Route: 042
     Dates: start: 20190314, end: 20190722

REACTIONS (3)
  - Underdose [Unknown]
  - Off label use [Recovered/Resolved]
  - Neutropenia [Recovered/Resolved]

NARRATIVE: CASE EVENT DATE: 20200101
